FAERS Safety Report 15904124 (Version 2)
Quarter: 2022Q1

REPORT INFORMATION
  Report Type: Spontaneous
  Country: AT (occurrence: AT)
  Receive Date: 20190204
  Receipt Date: 20220106
  Transmission Date: 20220423
  Serious: Yes (Hospitalization)
  Sender: FDA-Public Use
  Company Number: None

PATIENT
  Age: 69 Year
  Sex: Female
  Weight: 121 kg

DRUGS (11)
  1. FUROSEMIDE [Suspect]
     Active Substance: FUROSEMIDE
     Indication: Product used for unknown indication
     Dosage: UNK
     Route: 048
     Dates: start: 2013
  2. FUROSEMIDE [Suspect]
     Active Substance: FUROSEMIDE
     Route: 048
     Dates: start: 2013
  3. FUROSEMIDE [Suspect]
     Active Substance: FUROSEMIDE
     Route: 042
  4. SERELAXIN [Suspect]
     Active Substance: SERELAXIN
     Indication: Cardiac failure acute
     Dosage: 30 UG/KG, QD
     Route: 042
     Dates: start: 20150107, end: 20150107
  5. SPIRONOLACTONE [Suspect]
     Active Substance: SPIRONOLACTONE
     Indication: Polyuria
     Dosage: 100 MILLIGRAM DAILY; 100 MG, QD
     Route: 048
     Dates: end: 20150121
  6. ALDACTONE [Suspect]
     Active Substance: SPIRONOLACTONE
     Indication: Polyuria
     Dosage: 200 MILLIGRAM DAILY; 200 MG, QD
     Route: 042
     Dates: start: 20140111
  7. XIPAMIDE [Suspect]
     Active Substance: XIPAMIDE
     Indication: Polyuria
     Dosage: 20 MILLIGRAM DAILY; 20 MG, QD
     Route: 048
     Dates: start: 20140114, end: 20150122
  8. BISOPROLOL FUMARATE [Concomitant]
     Active Substance: BISOPROLOL FUMARATE
     Indication: Hypertension
     Dosage: 5 MILLIGRAM DAILY; 5 MG, QD
     Route: 048
  9. BAYPRESS [Concomitant]
     Active Substance: NITRENDIPINE
     Indication: Hypertension
     Dosage: 5 MILLIGRAM DAILY; 5 MG, TID (1/2-1/2-1/2)
     Route: 048
  10. LASIX [Concomitant]
     Active Substance: FUROSEMIDE
     Dosage: 1 DOSAGE FORMS DAILY; 1 DF, QD (1/4-0-0)
     Route: 048
  11. LASIX [Concomitant]
     Active Substance: FUROSEMIDE
     Indication: Polyuria
     Dosage: 92.5 MG (12.5MG-80MG-0)
     Route: 048
     Dates: start: 20150114

REACTIONS (1)
  - Chronic kidney disease [Recovered/Resolved with Sequelae]

NARRATIVE: CASE EVENT DATE: 20150119
